FAERS Safety Report 16367014 (Version 3)
Quarter: 2019Q3

REPORT INFORMATION
  Report Type: Spontaneous
  Country: US (occurrence: US)
  Receive Date: 20190529
  Receipt Date: 20190708
  Transmission Date: 20191004
  Serious: Yes (Other)
  Sender: FDA-Public Use
  Company Number: US-SA-2019SA141995

PATIENT
  Sex: Male

DRUGS (3)
  1. ELIQUIS [Suspect]
     Active Substance: APIXABAN
     Dosage: UNK UNK, BID
     Route: 065
  2. METFORMIN [Concomitant]
     Active Substance: METFORMIN HYDROCHLORIDE
     Indication: TYPE 2 DIABETES MELLITUS
     Dosage: UNK
  3. PLAVIX [Suspect]
     Active Substance: CLOPIDOGREL BISULFATE
     Dosage: UNK UNK, QD
     Route: 065
     Dates: start: 201903

REACTIONS (7)
  - Embolism [Unknown]
  - Ill-defined disorder [Unknown]
  - Abnormal behaviour [Unknown]
  - Pigmentation disorder [Unknown]
  - Internal haemorrhage [Not Recovered/Not Resolved]
  - Coronary artery disease [Unknown]
  - Nervousness [Unknown]
